FAERS Safety Report 4761369-1 (Version None)
Quarter: 2005Q3

REPORT INFORMATION
  Report Type: 
  Country: None (occurrence: None)
  Receive Date: 20050906
  Receipt Date: 20041224
  Transmission Date: 20060218
  Serious: Yes (Death)
  Sender: FDA-Public Use
  Company Number: GB-BRISTOL-MYERS SQUIBB COMPANY-12806063

PATIENT
  Age: 73 Year
  Sex: Female

DRUGS (16)
  1. GLUCOPHAGE [Suspect]
     Indication: DIABETES MELLITUS NON-INSULIN-DEPENDENT
     Route: 048
  2. RAMIPRIL [Concomitant]
  3. ATENOLOL [Concomitant]
  4. SIMVASTATIN [Concomitant]
  5. LEVOTHYROXINE SODIUM [Concomitant]
  6. BENDROFLUMETHIAZIDE [Concomitant]
  7. METOCLOPRAMIDE HCL [Concomitant]
  8. MAGNESIUM HYDROXIDE TAB [Concomitant]
  9. SENNA [Concomitant]
  10. CYCLIZINE [Concomitant]
  11. CO-PROXAMOL [Concomitant]
  12. ERYTHROMYCIN [Concomitant]
  13. CEFUROXIME [Concomitant]
  14. METRONIDAZOLE [Concomitant]
  15. ENOXAPARIN SODIUM [Concomitant]
  16. GLICLAZIDE [Concomitant]

REACTIONS (2)
  - LACTIC ACIDOSIS [None]
  - RENAL FAILURE [None]
